FAERS Safety Report 9797023 (Version 1)
Quarter: 2014Q1

REPORT INFORMATION
  Report Type: Spontaneous
  Country: AT (occurrence: AT)
  Receive Date: 20140105
  Receipt Date: 20140105
  Transmission Date: 20141002
  Serious: Yes (Hospitalization)
  Sender: FDA-Public Use
  Company Number: AT-ROCHE-1328466

PATIENT
  Age: 71 Year
  Sex: Female
  Weight: 65.2 kg

DRUGS (3)
  1. ZELBORAF [Suspect]
     Indication: METASTATIC MALIGNANT MELANOMA
     Route: 065
     Dates: start: 201303, end: 20130327
  2. EUTHYROX [Concomitant]
     Indication: THYROID HORMONE REPLACEMENT THERAPY
     Dosage: 1-0-0, LONG TERM THERAPY
     Route: 065
  3. PRAM [Concomitant]
     Indication: DEPRESSION
     Dosage: 1-0-0, LONG TERM THERAPY
     Route: 065

REACTIONS (4)
  - Drug eruption [Recovered/Resolved]
  - Decreased appetite [Recovered/Resolved]
  - Dysgeusia [Recovered/Resolved]
  - Fatigue [Recovered/Resolved]
